FAERS Safety Report 4471990-6 (Version None)
Quarter: 2004Q4

REPORT INFORMATION
  Report Type: 
  Country: None (occurrence: None)
  Receive Date: 20041007
  Receipt Date: 20040923
  Transmission Date: 20050328
  Serious: No
  Sender: FDA-Public Use
  Company Number: 2004UW19796

PATIENT
  Age: 83 Year
  Sex: Male

DRUGS (8)
  1. XYLOCAINE TOPICAL FILM [Suspect]
     Dosage: 50 ML TP
     Route: 061
  2. CARDIZEM [Concomitant]
  3. DIAMICRON [Concomitant]
  4. DIGOXIN [Concomitant]
  5. LASIX [Concomitant]
  6. NITRO-DUR [Concomitant]
  7. SLOW-K [Concomitant]
  8. VITAMIN B-12 [Concomitant]

REACTIONS (9)
  - ATRIAL FIBRILLATION [None]
  - BRADYCARDIA [None]
  - COLD SWEAT [None]
  - DIZZINESS [None]
  - FEELING ABNORMAL [None]
  - GRAND MAL CONVULSION [None]
  - HYPOTENSION [None]
  - LOSS OF CONSCIOUSNESS [None]
  - RESPIRATORY ARREST [None]
